FAERS Safety Report 8220017-9 (Version None)
Quarter: 2012Q1

REPORT INFORMATION
  Report Type: 
  Country: None (occurrence: None)
  Receive Date: 20120320
  Receipt Date: 20120307
  Transmission Date: 20120608
  Serious: Yes (Other)
  Sender: FDA-Public Use
  Company Number: JP-BRISTOL-MYERS SQUIBB COMPANY-16425001

PATIENT
  Age: 85 Year
  Sex: Male

DRUGS (4)
  1. ABILIFY [Suspect]
     Indication: DELUSION
     Route: 048
  2. DONEPEZIL HCL [Concomitant]
  3. ABILIFY [Suspect]
     Indication: HALLUCINATION, VISUAL
     Route: 048
  4. ABILIFY [Suspect]
     Indication: RESTLESSNESS
     Route: 048

REACTIONS (1)
  - SUBDURAL HAEMATOMA [None]
